FAERS Safety Report 8058214-8 (Version None)
Quarter: 2012Q1

REPORT INFORMATION
  Report Type: 
  Country: None (occurrence: None)
  Receive Date: 20120111
  Receipt Date: 20120103
  Transmission Date: 20120608
  Serious: Yes (Hospitalization)
  Sender: FDA-Public Use
  Company Number: 2012SP000484

PATIENT
  Age: 61 Year
  Sex: Female

DRUGS (15)
  1. DEROXAT [Concomitant]
  2. KAYEXALATE [Concomitant]
  3. NOXAFIL [Suspect]
     Indication: ANTIFUNGAL PROPHYLAXIS
     Dosage: 200 MG;TID;PO
     Route: 048
     Dates: start: 20110922, end: 20111205
  4. FOLIC ACID [Concomitant]
  5. CALCIUM [Concomitant]
  6. ALDACTON [Concomitant]
  7. BACTRIM [Suspect]
     Indication: ANTIBIOTIC PROPHYLAXIS
     Dosage: 800 MG;TIW;PO
     Route: 048
     Dates: start: 20110922, end: 20111205
  8. PREVISCAN [Concomitant]
  9. DIGOXIN [Concomitant]
  10. PERDNISONE [Concomitant]
  11. ACETAMINOPHEN [Concomitant]
  12. NEXIUM [Concomitant]
  13. PHENOXYMETHYL PENICILLIN [Concomitant]
  14. RITUXAN [Suspect]
     Indication: ANTISYNTHETASE SYNDROME
     Dosage: 1000 MG;IV
     Route: 042
     Dates: start: 20111115, end: 20111201
  15. VALSARTAN [Concomitant]

REACTIONS (2)
  - FEBRILE NEUTROPENIA [None]
  - AGRANULOCYTOSIS [None]
